FAERS Safety Report 5894188-3 (Version None)
Quarter: 2008Q3

REPORT INFORMATION
  Report Type: 
  Country: None (occurrence: None)
  Receive Date: 20080922
  Receipt Date: 20080910
  Transmission Date: 20090109
  Serious: Yes (Death, Life-Threatening)
  Sender: FDA-Public Use
  Company Number: 2008AL010376

PATIENT
  Age: 96 Year
  Sex: Female
  Weight: 45.3597 kg

DRUGS (1)
  1. DIGOXIN [Suspect]
     Dosage: PO
     Route: 048

REACTIONS (10)
  - ASTHENIA [None]
  - BALANCE DISORDER [None]
  - BLINDNESS [None]
  - BLOOD PRESSURE DECREASED [None]
  - DIZZINESS [None]
  - EYE DISORDER [None]
  - INCORRECT DOSE ADMINISTERED [None]
  - MYOCARDIAL INFARCTION [None]
  - THERAPEUTIC AGENT TOXICITY [None]
  - VOMITING [None]
